FAERS Safety Report 10507501 (Version 1)
Quarter: 2014Q4

REPORT INFORMATION
  Report Type: Spontaneous
  Country: US (occurrence: US)
  Receive Date: 20141009
  Receipt Date: 20141009
  Transmission Date: 20150528
  Serious: No
  Sender: FDA-Public Use
  Company Number: US-TEVA-514200USA

PATIENT
  Age: 64 Year
  Sex: Female
  Weight: 79 kg

DRUGS (5)
  1. ALLEGRA-D [Concomitant]
     Active Substance: FEXOFENADINE\PSEUDOEPHEDRINE
     Indication: HYPERSENSITIVITY
  2. BABY ASPIRIN [Concomitant]
     Active Substance: ASPIRIN
  3. MULTIVITAMINS [Concomitant]
     Active Substance: VITAMINS
  4. QNASL [Suspect]
     Active Substance: BECLOMETHASONE DIPROPIONATE
     Indication: BALANCE DISORDER
     Route: 045
     Dates: start: 20140915
  5. QNASL [Suspect]
     Active Substance: BECLOMETHASONE DIPROPIONATE
     Indication: SINUS DISORDER
     Route: 045
     Dates: start: 2013, end: 2014

REACTIONS (2)
  - Epistaxis [Recovered/Resolved]
  - Product use issue [Not Recovered/Not Resolved]

NARRATIVE: CASE EVENT DATE: 201401
